FAERS Safety Report 8513670-3 (Version None)
Quarter: 2012Q3

REPORT INFORMATION
  Report Type: 
  Country: None (occurrence: None)
  Receive Date: 20120717
  Receipt Date: 20120702
  Transmission Date: 20120928
  Serious: Yes (Other)
  Sender: FDA-Public Use
  Company Number: US-ELI_LILLY_AND_COMPANY-US201202004167

PATIENT
  Sex: Male
  Weight: 30.2 kg

DRUGS (1)
  1. HUMATROPE [Suspect]
     Dosage: 1.0 MG, UNK
     Route: 058
     Dates: start: 20120115, end: 20120125

REACTIONS (1)
  - MYOPATHY [None]
